FAERS Safety Report 11074023 (Version 3)
Quarter: 2015Q3

REPORT INFORMATION
  Report Type: Spontaneous
  Country: US (occurrence: US)
  Receive Date: 20150429
  Receipt Date: 20150721
  Transmission Date: 20151125
  Serious: Yes (Hospitalization)
  Sender: FDA-Public Use
  Company Number: US-AMGEN-USASL2015040764

PATIENT
  Age: 67 Year
  Sex: Female

DRUGS (1)
  1. ENBREL [Suspect]
     Active Substance: ETANERCEPT
     Indication: RHEUMATOID ARTHRITIS
     Dosage: 50 MG, QWK
     Route: 065
     Dates: start: 20140321

REACTIONS (4)
  - Mobility decreased [Not Recovered/Not Resolved]
  - Knee arthroplasty [Recovered/Resolved]
  - Arthritis [Unknown]
  - Pain [Recovered/Resolved]

NARRATIVE: CASE EVENT DATE: 2015
